FAERS Safety Report 6958458-X (Version None)
Quarter: 2010Q3

REPORT INFORMATION
  Report Type: 
  Country: None (occurrence: None)
  Receive Date: 20100830
  Receipt Date: 20100830
  Transmission Date: 20110219
  Serious: Yes (Other)
  Sender: FDA-Public Use
  Company Number: None

PATIENT
  Age: 53 Year
  Sex: Male
  Weight: 108.8633 kg

DRUGS (1)
  1. OXYCODONE [Suspect]
     Dosage: 7.5/325 MG TAKE 1-2 WEEKS EVERY 96 HRS

REACTIONS (2)
  - NAUSEA [None]
  - VOMITING [None]
